FAERS Safety Report 19217479 (Version 1)
Quarter: 2021Q2

REPORT INFORMATION
  Report Type: Spontaneous
  Country: US (occurrence: US)
  Receive Date: 20210505
  Receipt Date: 20210505
  Transmission Date: 20210717
  Serious: Yes (Hospitalization)
  Sender: FDA-Public Use
  Company Number: None

PATIENT
  Age: 38 Year
  Sex: Female
  Weight: 55.34 kg

DRUGS (4)
  1. LEVOTHYROXINE. [Concomitant]
     Active Substance: LEVOTHYROXINE
  2. ONE?A?DAY NOS [Concomitant]
     Active Substance: MINERALS\VITAMINS
  3. CALCIUM [Concomitant]
     Active Substance: CALCIUM
  4. CHLORAPREP [Suspect]
     Active Substance: CHLORHEXIDINE GLUCONATE\ISOPROPYL ALCOHOL

REACTIONS (8)
  - Rash [None]
  - Urticaria [None]
  - Skin exfoliation [None]
  - Eye swelling [None]
  - Swelling [None]
  - Pruritus [None]
  - Ear swelling [None]
  - Pain of skin [None]

NARRATIVE: CASE EVENT DATE: 20210324
